FAERS Safety Report 5832106-4 (Version None)
Quarter: 2008Q3

REPORT INFORMATION
  Report Type: 
  Country: None (occurrence: None)
  Receive Date: 20080731
  Receipt Date: 20080721
  Transmission Date: 20090109
  Serious: Yes (Death, Hospitalization, Other)
  Sender: FDA-Public Use
  Company Number: 163-21880-08071181

PATIENT
  Age: 70 Year
  Sex: Male

DRUGS (12)
  1. REVLIMID [Suspect]
     Indication: MYELODYSPLASTIC SYNDROME
     Dosage: 5 MG, 1 IN 1 D, ORAL;   10 MG, 1 IN 1 D, ORAL
     Route: 048
     Dates: start: 20080101
  2. REVLIMID [Suspect]
     Indication: MYELODYSPLASTIC SYNDROME
     Dosage: 5 MG, 1 IN 1 D, ORAL;   10 MG, 1 IN 1 D, ORAL
     Route: 048
     Dates: start: 20080331
  3. FENTANYL (FENTANYL) (POULTICE OR PATCH) [Concomitant]
  4. FLOMAX [Concomitant]
  5. LASIX [Concomitant]
  6. ATENOLOL [Concomitant]
  7. PROCRIT [Concomitant]
  8. DOXEPIN HCL [Concomitant]
  9. MORPHINE ER (MORPHINE) [Concomitant]
  10. MEGACE [Concomitant]
  11. METOLAZONE [Concomitant]
  12. NASAREL (FLUNISOLIDE) (NASAL DROPS (INCLUDING NASAL SPRAY) [Concomitant]

REACTIONS (9)
  - ASTHENIA [None]
  - BACK PAIN [None]
  - CHROMATURIA [None]
  - DYSPNOEA [None]
  - INCREASED TENDENCY TO BRUISE [None]
  - MYOCARDIAL INFARCTION [None]
  - NEUTROPHIL COUNT DECREASED [None]
  - OROPHARYNGEAL PAIN [None]
  - THROMBOCYTOPENIA [None]
